FAERS Safety Report 7393033-7 (Version None)
Quarter: 2011Q2

REPORT INFORMATION
  Report Type: 
  Country: None (occurrence: None)
  Receive Date: 20110404
  Receipt Date: 20110328
  Transmission Date: 20111010
  Serious: Yes (Other)
  Sender: FDA-Public Use
  Company Number: US-US-EMD SERONO, INC.-7050755

PATIENT
  Sex: Male

DRUGS (1)
  1. REBIF [Suspect]
     Route: 064

REACTIONS (3)
  - DRUG EXPOSURE DURING PREGNANCY [None]
  - FISTULA [None]
  - CARDIAC SEPTAL DEFECT [None]
